FAERS Safety Report 21644841 (Version 1)
Quarter: 2022Q4

REPORT INFORMATION
  Report Type: Report from Study
  Country: BR (occurrence: BR)
  Receive Date: 20221125
  Receipt Date: 20221125
  Transmission Date: 20230112
  Serious: Yes (Other)
  Sender: FDA-Public Use
  Company Number: BR-TAKEDA-BR202020262

PATIENT
  Age: 11 Year
  Sex: Male
  Weight: 30 kg

DRUGS (3)
  1. IDURSULFASE [Suspect]
     Active Substance: IDURSULFASE
     Indication: Mucopolysaccharidosis II
     Dosage: 3 DOSAGE FORM
     Route: 065
  2. IDURSULFASE [Suspect]
     Active Substance: IDURSULFASE
     Dosage: UNK
     Route: 065
  3. IDURSULFASE [Suspect]
     Active Substance: IDURSULFASE
     Dosage: 3 DOSAGE FORM
     Route: 042

REACTIONS (6)
  - Device related infection [Unknown]
  - Constipation [Recovered/Resolved]
  - Influenza [Recovered/Resolved]
  - Nasal congestion [Unknown]
  - Product dispensing error [Unknown]
  - Product dose omission issue [Unknown]

NARRATIVE: CASE EVENT DATE: 20220324
